FAERS Safety Report 6932229-2 (Version None)
Quarter: 2010Q3

REPORT INFORMATION
  Report Type: 
  Country: None (occurrence: None)
  Receive Date: 20100819
  Receipt Date: 20100809
  Transmission Date: 20110219
  Serious: Yes (Other)
  Sender: FDA-Public Use
  Company Number: US-PFIZER INC-2010100598

PATIENT
  Sex: Female
  Weight: 55.8 kg

DRUGS (1)
  1. LIPITOR [Suspect]
     Indication: BLOOD CHOLESTEROL INCREASED
     Dosage: 10 MG, 1X/DAY
     Route: 048
     Dates: start: 20100301, end: 20100701

REACTIONS (4)
  - CONFUSIONAL STATE [None]
  - DECREASED APPETITE [None]
  - MEMORY IMPAIRMENT [None]
  - WEIGHT DECREASED [None]
